FAERS Safety Report 6413328-0 (Version None)
Quarter: 2009Q4

REPORT INFORMATION
  Report Type: 
  Country: None (occurrence: None)
  Receive Date: 20091026
  Receipt Date: 20091021
  Transmission Date: 20100525
  Serious: Yes (Hospitalization)
  Sender: FDA-Public Use
  Company Number: IN-BRISTOL-MYERS SQUIBB COMPANY-14801062

PATIENT
  Age: 70 Year
  Sex: Male
  Weight: 68 kg

DRUGS (12)
  1. CARBOPLATIN [Suspect]
     Indication: NON-SMALL CELL LUNG CANCER
     Dosage: DOSE REDUCED TO 569 MG(AUC 5) ON 13-SEP-2009
     Route: 042
     Dates: start: 20090822
  2. PACLITAXEL [Suspect]
     Indication: NON-SMALL CELL LUNG CANCER
     Dosage: DOSE REDUCED TO 294 MG (175 MG/M2) ON 13SEP09
     Route: 042
     Dates: start: 20090822
  3. CP-751,871 [Suspect]
     Indication: NON-SMALL CELL LUNG CANCER
     Dosage: 1360 MG ON 22AUG09
     Route: 042
     Dates: start: 20090822
  4. GRANISETRON HCL [Concomitant]
     Dates: start: 20090824, end: 20090826
  5. RABICIP [Concomitant]
     Dates: start: 20090824, end: 20090826
  6. ATIVAN [Concomitant]
     Dosage: TAB
     Dates: start: 20090824, end: 20090826
  7. NEUPOGEN [Concomitant]
     Dates: start: 20090824, end: 20090831
  8. DEXONA [Concomitant]
     Dosage: INJECTION
     Dates: start: 20090822, end: 20090822
  9. RANTAC [Concomitant]
     Dates: start: 20090822, end: 20090822
  10. PHENERGAN HCL [Concomitant]
     Dates: start: 20090822, end: 20090822
  11. PALONOSETRON [Concomitant]
     Dates: start: 20090822, end: 20090822
  12. CREMAFFIN [Concomitant]
     Dates: start: 20090824, end: 20090826

REACTIONS (5)
  - ASTHENIA [None]
  - DIARRHOEA [None]
  - DIZZINESS [None]
  - DYSPNOEA [None]
  - NAUSEA [None]
